FAERS Safety Report 23657460 (Version 3)
Quarter: 2024Q2

REPORT INFORMATION
  Report Type: Spontaneous
  Country: ES (occurrence: ES)
  Receive Date: 20240321
  Receipt Date: 20240528
  Transmission Date: 20240716
  Serious: Yes (Hospitalization, Other)
  Sender: FDA-Public Use
  Company Number: ES-002147023-NVSC2024ES059538

PATIENT
  Age: 71 Year
  Sex: Male

DRUGS (6)
  1. SECUKINUMAB [Suspect]
     Active Substance: SECUKINUMAB
     Indication: IgA nephropathy
     Dosage: IN 0, 1, 2, 3 AND 4?WEEKS IN INDUCTION PHASE AND MONTHLY FOR MAINTENANCE
     Route: 058
  2. MYCOPHENOLATE MOFETIL [Suspect]
     Active Substance: MYCOPHENOLATE MOFETIL
     Indication: IgA nephropathy
     Dosage: UNK
     Route: 065
  3. PREDNISONE [Suspect]
     Active Substance: PREDNISONE
     Indication: IgA nephropathy
     Dosage: UNK
     Route: 065
  4. ZEMPLAR [Suspect]
     Active Substance: PARICALCITOL
     Indication: IgA nephropathy
     Dosage: 1 UG, QD
     Route: 065
  5. ZEMPLAR [Suspect]
     Active Substance: PARICALCITOL
     Route: 048
  6. OLMESARTAN [Concomitant]
     Active Substance: OLMESARTAN
     Indication: IgA nephropathy
     Dosage: UNK
     Route: 065

REACTIONS (2)
  - Herpes zoster [Recovered/Resolved]
  - Product use in unapproved indication [Unknown]
